FAERS Safety Report 6999873-8 (Version None)
Quarter: 2010Q3

REPORT INFORMATION
  Report Type: 
  Country: None (occurrence: None)
  Receive Date: 20100920
  Receipt Date: 20100331
  Transmission Date: 20110219
  Serious: No
  Sender: FDA-Public Use
  Company Number: US-ASTRAZENECA-2008UW21451

PATIENT
  Age: 34 Year
  Sex: Male
  Weight: 131.5 kg

DRUGS (4)
  1. SEROQUEL [Suspect]
     Route: 048
     Dates: start: 20031024
  2. LAMICTAL [Concomitant]
  3. ZOLOFT [Concomitant]
  4. SONATA [Concomitant]
     Indication: INSOMNIA
     Dosage: 10 OR 20 MG QHS PRN

REACTIONS (3)
  - ESSENTIAL HYPERTENSION [None]
  - OBESITY [None]
  - TYPE 2 DIABETES MELLITUS [None]
